FAERS Safety Report 4903302-5 (Version None)
Quarter: 2006Q1

REPORT INFORMATION
  Report Type: 
  Country: None (occurrence: None)
  Receive Date: 20060208
  Receipt Date: 20060206
  Transmission Date: 20060701
  Serious: Yes (Death, Congenital Anomaly, Other)
  Sender: FDA-Public Use
  Company Number: FI-RB-2744-2006

PATIENT
  Age: 12 Day

DRUGS (7)
  1. BUPRENORPHINE HCL [Suspect]
     Route: 064
  2. BUPRENORPHINE HCL [Suspect]
     Dosage: 6-7 MG QD
     Route: 064
  3. MIANSERIN [Suspect]
     Indication: DRUG USE FOR UNKNOWN INDICATION
     Dosage: DOSAGE UNKNOWN
     Route: 064
  4. PROMAZINE [Suspect]
     Indication: DRUG USE FOR UNKNOWN INDICATION
     Dosage: DOSAGE UNKNOWN
     Route: 064
  5. CHLORPROTHIXENE [Suspect]
     Indication: DRUG USE FOR UNKNOWN INDICATION
     Dosage: DOSAGE UNKNOWN
     Route: 064
  6. METRONIDAZOLE [Suspect]
     Indication: DRUG USE FOR UNKNOWN INDICATION
     Dosage: DOSAGE UNKNOWN
     Route: 064
  7. PROPACETAMOL [Suspect]
     Indication: DRUG USE FOR UNKNOWN INDICATION
     Dosage: DOSAGE UNKNOWN
     Route: 065

REACTIONS (4)
  - DEATH [None]
  - DIAPHRAGMATIC HERNIA [None]
  - PULMONARY HYPOPLASIA [None]
  - VENTRICULAR HYPOPLASIA [None]
